FAERS Safety Report 8157974-5 (Version None)
Quarter: 2012Q1

REPORT INFORMATION
  Report Type: 
  Country: None (occurrence: None)
  Receive Date: 20120222
  Receipt Date: 20120209
  Transmission Date: 20120608
  Serious: Yes (Other)
  Sender: FDA-Public Use
  Company Number: PHHY2012HR011502

PATIENT
  Age: 59 Year
  Sex: Male

DRUGS (6)
  1. ALLOPURINOL [Concomitant]
     Dosage: 100 MG, QD
  2. IMURAN [Concomitant]
     Indication: HEART TRANSPLANT
     Dosage: 25 MG, QD
     Route: 048
     Dates: start: 20020701
  3. FUROSEMIDE [Interacting]
     Indication: CARDIAC FAILURE
     Dosage: 40 MG, QD
  4. ATENOLOL [Concomitant]
     Dosage: 50 MG, QD
     Route: 048
  5. PANTOPRAZOLE [Interacting]
     Indication: GASTRITIS
  6. NEORAL [Suspect]
     Indication: HEART TRANSPLANT
     Dosage: 100 MG, QD
     Route: 048
     Dates: start: 20020701

REACTIONS (9)
  - HYPOMAGNESAEMIA [None]
  - BLOOD PARATHYROID HORMONE INCREASED [None]
  - DRUG INTERACTION [None]
  - PAIN IN EXTREMITY [None]
  - GASTRITIS [None]
  - AGITATION [None]
  - MUSCLE SPASMS [None]
  - TREMOR [None]
  - CARDIAC FAILURE [None]
